FAERS Safety Report 11584545 (Version 2)
Quarter: 2015Q4

REPORT INFORMATION
  Report Type: Spontaneous
  Country: US (occurrence: US)
  Receive Date: 20151001
  Receipt Date: 20151120
  Transmission Date: 20160304
  Serious: Yes (Other)
  Sender: FDA-Public Use
  Company Number: US-AMGEN-USASP2015101034

PATIENT
  Age: 71 Year
  Sex: Male

DRUGS (3)
  1. ENBREL [Suspect]
     Active Substance: ETANERCEPT
     Indication: RHEUMATOID ARTHRITIS
     Dosage: UNK UNK, UNK
     Route: 065
     Dates: start: 2010
  2. REMICADE [Concomitant]
     Active Substance: INFLIXIMAB
     Dosage: UNK
  3. ORENCIA [Concomitant]
     Active Substance: ABATACEPT
     Dosage: UNK

REACTIONS (8)
  - Device issue [Unknown]
  - Tooth extraction [Unknown]
  - Injection site mass [Unknown]
  - Lung neoplasm [Not Recovered/Not Resolved]
  - Hepatic failure [Unknown]
  - Pneumonia [Unknown]
  - Drug dose omission [Unknown]
  - Tooth infection [Unknown]

NARRATIVE: CASE EVENT DATE: 2015
